FAERS Safety Report 15507245 (Version 1)
Quarter: 2018Q4

REPORT INFORMATION
  Report Type: Spontaneous
  Country: CN (occurrence: CN)
  Receive Date: 20181016
  Receipt Date: 20181016
  Transmission Date: 20190205
  Serious: Yes (Death, Other)
  Sender: FDA-Public Use
  Company Number: CN-BAYER-2018-191786

PATIENT
  Age: 61 Year
  Sex: Female

DRUGS (1)
  1. ULTRAVIST [Suspect]
     Active Substance: IOPROMIDE
     Indication: COMPUTERISED TOMOGRAM CORONARY ARTERY
     Dosage: 100 ML, ONCE
     Route: 042
     Dates: start: 20181013, end: 20181013

REACTIONS (6)
  - Flushing [None]
  - Cyanosis [None]
  - Hypoaesthesia oral [None]
  - Death [Fatal]
  - Loss of consciousness [None]
  - Dyspnoea [None]

NARRATIVE: CASE EVENT DATE: 20181013
